FAERS Safety Report 10073408 (Version 1)
Quarter: 2014Q2

REPORT INFORMATION
  Report Type: Spontaneous
  Country: JP (occurrence: JP)
  Receive Date: 20140411
  Receipt Date: 20140411
  Transmission Date: 20141212
  Serious: Yes (Death)
  Sender: FDA-Public Use
  Company Number: JP-EISAI INC-E2020-13885-SPO-JP

PATIENT
  Age: 84 Year
  Sex: Female

DRUGS (2)
  1. ARICEPT [Suspect]
     Indication: DEMENTIA
     Route: 048
     Dates: end: 20140327
  2. ARICEPT [Suspect]
     Route: 048
     Dates: start: 20140328, end: 20140330

REACTIONS (1)
  - Sudden death [Fatal]
